FAERS Safety Report 7642330-6 (Version None)
Quarter: 2011Q3

REPORT INFORMATION
  Report Type: 
  Country: None (occurrence: None)
  Receive Date: 20110722
  Receipt Date: 20110711
  Transmission Date: 20111222
  Serious: Yes (Hospitalization)
  Sender: FDA-Public Use
  Company Number: TCI2011A03972

PATIENT
  Age: 77 Year
  Sex: Female

DRUGS (3)
  1. PIOGLITAZONE HYDROCHLORIDE AND METFORMIN HYDROCHLORIDE [Suspect]
     Indication: TYPE 2 DIABETES MELLITUS
     Dosage: PER ORAL
     Route: 048
     Dates: start: 20110121
  2. AMARYL [Concomitant]
  3. VICTOZA [Concomitant]

REACTIONS (2)
  - PLEURAL EFFUSION [None]
  - CARDIAC FAILURE [None]
